FAERS Safety Report 23126482 (Version 5)
Quarter: 2024Q4

REPORT INFORMATION
  Report Type: Spontaneous
  Country: US (occurrence: US)
  Receive Date: 20231030
  Receipt Date: 20241230
  Transmission Date: 20250114
  Serious: Yes (Other)
  Sender: PFIZER
  Company Number: US-PFIZER INC-PV202300176787

PATIENT
  Age: 70 Year
  Sex: Female
  Weight: 105.39 kg

DRUGS (8)
  1. IBRANCE [Suspect]
     Active Substance: PALBOCICLIB
     Indication: Breast cancer female
     Dosage: 125 MG, 1X/DAY (FOR 21 CONSECUTIVE DAYS, FOLLOWED BY 7 DAYS OFF)
     Route: 048
     Dates: start: 20211109
  2. IBRANCE [Suspect]
     Active Substance: PALBOCICLIB
     Indication: Hormone receptor positive breast cancer
  3. IBRANCE [Suspect]
     Active Substance: PALBOCICLIB
     Indication: Breast cancer female
     Dosage: 100 MG, 1X/DAY (FOR 21 CONSECUTIVE DAYS, FOLLOWED BY 7 DAYS OFF)
  4. IBRANCE [Suspect]
     Active Substance: PALBOCICLIB
     Indication: Hormone receptor positive breast cancer
     Dosage: TAKE 1 CAPSULE (100 MG) BY ORAL ROUTE ONCE DALLY FOR 21 DAYS + 7 DAYS OFF.
     Route: 048
     Dates: start: 20211124
  5. FEMARA [Concomitant]
     Active Substance: LETROZOLE
     Indication: Breast cancer
     Dosage: UNK
     Dates: start: 20211109
  6. FEMARA [Concomitant]
     Active Substance: LETROZOLE
     Indication: Menopausal symptoms
  7. FEMARA [Concomitant]
     Active Substance: LETROZOLE
     Indication: Endocrine disorder
  8. LETROZOLE [Concomitant]
     Active Substance: LETROZOLE
     Dosage: UNK

REACTIONS (11)
  - Eye operation [Unknown]
  - Chronic kidney disease [Unknown]
  - Leukopenia [Unknown]
  - Neoplasm progression [Unknown]
  - Product dispensing error [Unknown]
  - Fatigue [Unknown]
  - Malaise [Unknown]
  - Tearfulness [Unknown]
  - Headache [Unknown]
  - Gastritis [Unknown]
  - Anaemia [Unknown]

NARRATIVE: CASE EVENT DATE: 20231026
